FAERS Safety Report 5036873-1 (Version None)
Quarter: 2006Q2

REPORT INFORMATION
  Report Type: 
  Country: None (occurrence: None)
  Receive Date: 20060628
  Receipt Date: 20060622
  Transmission Date: 20061013
  Serious: Yes (Other)
  Sender: FDA-Public Use
  Company Number: 2006UW13286

PATIENT
  Age: 89 Year
  Sex: Male
  Weight: 68.5 kg

DRUGS (6)
  1. CRESTOR [Suspect]
     Route: 048
  2. FOLIC ACID [Concomitant]
  3. NORVASC [Concomitant]
  4. LISINOPRIL [Concomitant]
  5. LOZOL [Concomitant]
  6. LOPID [Concomitant]

REACTIONS (1)
  - HEPATIC NEOPLASM MALIGNANT NON-RESECTABLE [None]
